FAERS Safety Report 7396928-3 (Version None)
Quarter: 2011Q1

REPORT INFORMATION
  Report Type: 
  Country: None (occurrence: None)
  Receive Date: 20110331
  Receipt Date: 20110331
  Transmission Date: 20110831
  Serious: Yes (Other)
  Sender: FDA-Public Use
  Company Number: None

PATIENT
  Age: 60 Year
  Sex: Female
  Weight: 129.2752 kg

DRUGS (2)
  1. LIPITOR [Suspect]
     Indication: DIABETIC COMPLICATION
     Dosage: 10 MG DAILY ORAL
     Route: 048
     Dates: start: 20040101, end: 20060101
  2. LIPITOR [Suspect]
     Indication: PROPHYLAXIS
     Dosage: 10 MG DAILY ORAL
     Route: 048
     Dates: start: 20040101, end: 20060101

REACTIONS (4)
  - MUSCULOSKELETAL STIFFNESS [None]
  - DYSPHAGIA [None]
  - WALKING AID USER [None]
  - BALANCE DISORDER [None]
